FAERS Safety Report 9179190 (Version 1)
Quarter: 2013Q1

REPORT INFORMATION
  Report Type: Report from Study
  Country: JP (occurrence: JP)
  Receive Date: 20130321
  Receipt Date: 20130321
  Transmission Date: 20140127
  Serious: Yes (Hospitalization)
  Sender: FDA-Public Use
  Company Number: JP-GLAXOSMITHKLINE-B0571565A

PATIENT
  Age: 67 Year
  Sex: Male

DRUGS (13)
  1. ZEFIX 100 [Suspect]
     Indication: HEPATIC CIRRHOSIS
     Dosage: 100MG PER DAY
     Route: 048
     Dates: start: 20050411
  2. HEPSERA [Concomitant]
     Indication: HEPATIC CIRRHOSIS
     Dosage: 10MG PER DAY
     Route: 048
     Dates: start: 20060116
  3. ALDACTONE A [Concomitant]
     Indication: HEPATIC CIRRHOSIS
     Route: 048
  4. LIVACT [Concomitant]
     Indication: HEPATIC CIRRHOSIS
     Route: 048
  5. GASTER D [Concomitant]
     Route: 048
  6. CEFZON [Concomitant]
     Route: 048
  7. LOCOID [Concomitant]
     Indication: DERMATITIS
     Route: 061
  8. UREPEARL [Concomitant]
     Indication: DERMATITIS
     Route: 061
  9. BASEN [Concomitant]
     Indication: DIABETES MELLITUS
     Route: 048
  10. ANTEBATE [Concomitant]
     Route: 061
  11. RESTAMIN [Concomitant]
     Route: 061
  12. MOHRUS TAPE [Concomitant]
     Route: 062
  13. DIFLUCORTOLONE [Concomitant]
     Indication: HAEMORRHOIDS
     Route: 054

REACTIONS (6)
  - Pathogen resistance [Unknown]
  - Hepatocellular carcinoma [Recovered/Resolved]
  - Liver function test abnormal [Recovered/Resolved]
  - Blood bilirubin increased [Recovered/Resolved]
  - Aspartate aminotransferase increased [Unknown]
  - Alanine aminotransferase increased [Unknown]
